FAERS Safety Report 4665180-1 (Version None)
Quarter: 2005Q2

REPORT INFORMATION
  Report Type: 
  Country: None (occurrence: None)
  Receive Date: 20050517
  Receipt Date: 20050503
  Transmission Date: 20051028
  Serious: Yes (Life-Threatening, Hospitalization)
  Sender: FDA-Public Use
  Company Number: B0380650A

PATIENT
  Age: 68 Year
  Sex: Male

DRUGS (2)
  1. ZINACEF [Suspect]
     Indication: PROPHYLAXIS
     Dosage: INTRAOCULAR
     Route: 031
     Dates: start: 20030213
  2. ANESTHETIC [Concomitant]

REACTIONS (6)
  - ANAPHYLACTIC REACTION [None]
  - HYPOVOLAEMIC SHOCK [None]
  - IATROGENIC INJURY [None]
  - MALAISE [None]
  - MEDICATION ERROR [None]
  - POST PROCEDURAL COMPLICATION [None]
